FAERS Safety Report 10561254 (Version 1)
Quarter: 2014Q4

REPORT INFORMATION
  Report Type: Spontaneous
  Country: US (occurrence: US)
  Receive Date: 20141103
  Receipt Date: 20141103
  Transmission Date: 20150529
  Serious: Yes (Hospitalization)
  Sender: FDA-Public Use
  Company Number: US-ELI_LILLY_AND_COMPANY-US201410010699

PATIENT
  Sex: Female

DRUGS (2)
  1. LOVENOX [Concomitant]
     Active Substance: ENOXAPARIN SODIUM
  2. FORTEO [Suspect]
     Active Substance: TERIPARATIDE
     Indication: OSTEOPOROSIS
     Dosage: UNK, QD
     Route: 065
     Dates: start: 20141014, end: 20141024

REACTIONS (7)
  - Peripheral arterial occlusive disease [Unknown]
  - Drug hypersensitivity [Unknown]
  - Pruritus generalised [Recovered/Resolved]
  - Incorrect product storage [Unknown]
  - Aneurysm [Unknown]
  - Procedural complication [Unknown]
  - Scratch [Unknown]
